FAERS Safety Report 11921898 (Version 1)
Quarter: 2016Q1

REPORT INFORMATION
  Report Type: Spontaneous
  Country: RU (occurrence: RU)
  Receive Date: 20160115
  Receipt Date: 20160115
  Transmission Date: 20160526
  Serious: Yes (Death)
  Sender: FDA-Public Use
  Company Number: RU-SA-2016SA005667

PATIENT
  Sex: Female
  Weight: 5.7 kg

DRUGS (1)
  1. CEREZYME [Suspect]
     Active Substance: IMIGLUCERASE
     Indication: GAUCHER^S DISEASE
     Route: 041
     Dates: start: 20151201, end: 20160105

REACTIONS (4)
  - Coma [Fatal]
  - Hydrocephalus [Fatal]
  - Brain oedema [Fatal]
  - Multiple organ dysfunction syndrome [Fatal]
